FAERS Safety Report 17071923 (Version 1)
Quarter: 2019Q4

REPORT INFORMATION
  Report Type: Spontaneous
  Country: US (occurrence: US)
  Receive Date: 20191122
  Receipt Date: 20191122
  Transmission Date: 20200122
  Serious: Yes (Death, Hospitalization)
  Sender: FDA-Public Use
  Company Number: None

PATIENT
  Age: 66 Year
  Sex: Female
  Weight: 60.75 kg

DRUGS (1)
  1. BREO ELLIPTA [Suspect]
     Active Substance: FLUTICASONE FUROATE\VILANTEROL TRIFENATATE
     Indication: ASTHMA
     Route: 055
     Dates: start: 20190829, end: 20190831

REACTIONS (5)
  - Dyspnoea [None]
  - Drug ineffective [None]
  - Cardio-respiratory arrest [None]
  - Chest injury [None]
  - Product complaint [None]

NARRATIVE: CASE EVENT DATE: 20190831
